FAERS Safety Report 6073303-5 (Version None)
Quarter: 2009Q1

REPORT INFORMATION
  Report Type: 
  Country: None (occurrence: None)
  Receive Date: 20090211
  Receipt Date: 20090129
  Transmission Date: 20090719
  Serious: Yes (Other)
  Sender: FDA-Public Use
  Company Number: PHHY2009JP03553

PATIENT
  Sex: Female
  Weight: 45 kg

DRUGS (19)
  1. DIOVAN [Suspect]
     Indication: HYPERTENSION
     Dosage: 80 MG, QD
     Route: 048
     Dates: start: 20071102
  2. TANATRIL ^ALGOL^ [Concomitant]
     Indication: HYPERTENSION
     Dosage: 5 MG, UNK
     Route: 048
     Dates: start: 20080602
  3. NOVOLIN N [Concomitant]
     Dosage: 28 DF, UNK
     Route: 058
     Dates: start: 20050502, end: 20081019
  4. MELBIN [Concomitant]
     Dosage: 750 MG, UNK
     Route: 048
     Dates: start: 20050502, end: 20080406
  5. NOVORAPID [Concomitant]
     Dosage: 30 DF, UNK
     Route: 058
     Dates: start: 20081020
  6. ACTOSIN [Concomitant]
     Dosage: UNK
     Dates: start: 20071017, end: 20071210
  7. CEFZON [Concomitant]
     Dosage: 300 MG, UNK
     Route: 048
     Dates: start: 20071003
  8. CEFZON [Concomitant]
     Dosage: 300 MG, UNK
     Route: 048
     Dates: end: 20071218
  9. GEBEN [Concomitant]
     Dosage: UNK
     Dates: start: 20071003, end: 20071016
  10. CADEX                              /00639302/ [Concomitant]
     Dosage: UNK
     Dates: start: 20071211, end: 20080108
  11. CLARITHROMYCIN [Concomitant]
     Dosage: 200 MG, UNK
     Route: 048
     Dates: start: 20071225, end: 20080107
  12. GENTACIN [Concomitant]
     Dosage: UNK
     Dates: start: 20071225, end: 20080220
  13. ADONA [Concomitant]
     Dosage: 90 MG, UNK
     Route: 048
     Dates: start: 20060217
  14. CARNACULIN [Concomitant]
     Dosage: 75 MG, UNK
     Route: 048
     Dates: start: 20060217
  15. NIFLAN [Concomitant]
     Dosage: 4 DF, UNK
     Route: 047
     Dates: start: 20070427
  16. SYAKUYAKUKANZOTO [Concomitant]
     Dosage: 5 G, UNK
     Route: 048
     Dates: start: 20081201
  17. LOXONIN [Concomitant]
     Dosage: 180 MG, UNK
     Route: 048
     Dates: start: 20081201
  18. SELBEX [Concomitant]
     Dosage: 150 MG, UNK
     Route: 048
     Dates: start: 20081201
  19. MOHRUS [Concomitant]
     Dosage: 60 MG, UNK
     Dates: start: 20081201

REACTIONS (7)
  - BLOOD GLUCOSE INCREASED [None]
  - ELECTROLYTE IMBALANCE [None]
  - EPICONDYLITIS [None]
  - GLUCOSE URINE PRESENT [None]
  - GLYCOSYLATED HAEMOGLOBIN INCREASED [None]
  - HYPERKERATOSIS [None]
  - MUSCLE SPASMS [None]
